FAERS Safety Report 10514678 (Version 1)
Quarter: 2014Q4

REPORT INFORMATION
  Report Type: Report from Study
  Country: DE (occurrence: CO)
  Receive Date: 20141013
  Receipt Date: 20141013
  Transmission Date: 20150528
  Serious: Yes (Death)
  Sender: FDA-Public Use
  Company Number: DE-ACTELION-A-US2014-106545

PATIENT
  Age: 71 Year
  Sex: Female

DRUGS (1)
  1. VENTAVIS [Suspect]
     Active Substance: ILOPROST
     Indication: PULMONARY HYPERTENSION
     Dosage: 6 NEBULATIONS DAILY, Q4HRS
     Route: 055
     Dates: start: 20140908, end: 20140927

REACTIONS (1)
  - Sleep apnoea syndrome [Fatal]
